FAERS Safety Report 17189267 (Version 1)
Quarter: 2019Q4

REPORT INFORMATION
  Report Type: Spontaneous
  Country: RO (occurrence: RO)
  Receive Date: 20191223
  Receipt Date: 20191223
  Transmission Date: 20200122
  Serious: Yes (Life-Threatening)
  Sender: FDA-Public Use
  Company Number: RO-ABBVIE-19K-135-3205008-00

PATIENT
  Age: 79 Year
  Sex: Male

DRUGS (3)
  1. MILURIT [Concomitant]
     Active Substance: ALLOPURINOL
     Indication: PROPHYLAXIS
     Route: 048
     Dates: start: 20190606
  2. IMBRUVICA [Suspect]
     Active Substance: IBRUTINIB
     Indication: CHRONIC LYMPHOCYTIC LEUKAEMIA
     Dosage: 420 MG PER DAY
     Route: 048
     Dates: start: 20190606, end: 20190902
  3. CONCOR [Concomitant]
     Active Substance: BISOPROLOL FUMARATE
     Indication: HYPERTENSION
     Route: 048

REACTIONS (7)
  - Decreased appetite [Unknown]
  - Nausea [Unknown]
  - Hypersensitivity [Unknown]
  - Skin haemorrhage [Unknown]
  - Cardiac failure [Unknown]
  - Oedema peripheral [Unknown]
  - Pyrexia [Unknown]

NARRATIVE: CASE EVENT DATE: 201906
